FAERS Safety Report 6887816-7 (Version None)
Quarter: 2010Q3

REPORT INFORMATION
  Report Type: 
  Country: None (occurrence: None)
  Receive Date: 20100730
  Receipt Date: 20100716
  Transmission Date: 20110219
  Serious: Yes (Hospitalization)
  Sender: FDA-Public Use
  Company Number: US-ROCHE-717467

PATIENT
  Sex: Male
  Weight: 72.5 kg

DRUGS (3)
  1. TRASTUZUMAB [Suspect]
     Dosage: 450 UNK, Q3W
     Route: 042
     Dates: start: 20100526
  2. CARBOPLATIN [Suspect]
     Route: 065
  3. DOCETAXEL [Suspect]
     Route: 065

REACTIONS (1)
  - DEHYDRATION [None]
